FAERS Safety Report 24712533 (Version 5)
Quarter: 2025Q4

REPORT INFORMATION
  Report Type: Report from Study
  Country: JP (occurrence: JP)
  Receive Date: 20241209
  Receipt Date: 20251229
  Transmission Date: 20260118
  Serious: Yes (Hospitalization, Other)
  Sender: BRISTOL-MYERS SQUIBB COMPANY
  Company Number: JP-ONO-2024JP014188

PATIENT
  Age: 62 Year
  Sex: Male
  Weight: 63.1 kg

DRUGS (3)
  1. OPDIVO [Suspect]
     Active Substance: NIVOLUMAB
     Indication: Non-small cell lung cancer
     Route: 041
     Dates: start: 20230712, end: 20230830
  2. CARBOPLATIN [Suspect]
     Active Substance: CARBOPLATIN
     Indication: Non-small cell lung cancer
     Dosage: AUC6
     Dates: start: 20230712, end: 20230830
  3. PACLITAXEL [Suspect]
     Active Substance: PACLITAXEL
     Indication: Non-small cell lung cancer
     Dosage: 200 MG/M2
     Dates: start: 20230712, end: 20230830

REACTIONS (6)
  - Thyroiditis [Recovering/Resolving]
  - Pulmonary fistula [Recovered/Resolved]
  - Infectious pleural effusion [Unknown]
  - Pulmonary congestion [Recovered/Resolved]
  - Pruritus [Unknown]
  - Anaemia [Recovering/Resolving]

NARRATIVE: CASE EVENT DATE: 20230928
